FAERS Safety Report 7028054-7 (Version None)
Quarter: 2010Q4

REPORT INFORMATION
  Report Type: 
  Country: None (occurrence: None)
  Receive Date: 20101005
  Receipt Date: 20100922
  Transmission Date: 20110411
  Serious: Yes (Hospitalization, Disabling, Other)
  Sender: FDA-Public Use
  Company Number: JP-ELI_LILLY_AND_COMPANY-JP201009001229

PATIENT
  Sex: Male
  Weight: 75 kg

DRUGS (4)
  1. ZYPREXA [Suspect]
     Indication: DEPRESSION
     Dosage: 2.5 MG, DAILY (1/D)
     Route: 048
     Dates: end: 20100906
  2. PAXIL [Concomitant]
     Dosage: 30 MG, DAILY (1/D)
     Route: 048
  3. MEDETAX [Concomitant]
     Dosage: 1 MG, DAILY (1/D)
     Route: 048
  4. NELUROLEN [Concomitant]
     Dosage: 5 MG, DAILY (1/D)
     Route: 048

REACTIONS (9)
  - BRAIN CONTUSION [None]
  - EXCORIATION [None]
  - HYPOGLYCAEMIA [None]
  - NERVE INJURY [None]
  - OFF LABEL USE [None]
  - QUADRIPARESIS [None]
  - ROAD TRAFFIC ACCIDENT [None]
  - SPINAL CORD INJURY [None]
  - SUBARACHNOID HAEMORRHAGE [None]
